FAERS Safety Report 9465630 (Version 3)
Quarter: 2013Q3

REPORT INFORMATION
  Report Type: Report from Study
  Country: VE (occurrence: VE)
  Receive Date: 20130820
  Receipt Date: 20130903
  Transmission Date: 20140515
  Serious: Yes (Hospitalization, Other)
  Sender: FDA-Public Use
  Company Number: PHHY2013VE053725

PATIENT
  Age: 54 Year
  Sex: Male

DRUGS (7)
  1. EXJADE [Suspect]
     Indication: MYELODYSPLASTIC SYNDROME
     Dosage: 500 MG, DAILY
     Route: 048
     Dates: start: 20130303, end: 20130303
  2. EXJADE [Suspect]
     Dosage: 500 MG, DAILY
     Route: 048
     Dates: start: 201306, end: 201306
  3. THALIDOMIDE [Concomitant]
     Dosage: 100 MG, DAILY
     Route: 048
  4. LADOGAL [Concomitant]
     Indication: ANAEMIA
     Dosage: 200 MG, DAILY
     Route: 048
     Dates: start: 2012
  5. METICORTEN [Concomitant]
     Dosage: 1/4 5 MG, UNK
     Route: 048
  6. EUTHYROX [Concomitant]
     Indication: HYPOTHYROIDISM
     Dosage: 175 UG, UNK
     Route: 048
  7. ANALGESICS [Concomitant]
     Dosage: WHEN THE PATIENT EXPERIENCE SYMPTOMS

REACTIONS (10)
  - Sepsis [Recovered/Resolved]
  - Malaise [Recovered/Resolved]
  - Asthenia [Recovered/Resolved]
  - Gait disturbance [Recovered/Resolved]
  - Hypotension [Recovered/Resolved]
  - Pyrexia [Recovered/Resolved]
  - Hypersensitivity [Recovered/Resolved]
  - Pruritus generalised [Recovered/Resolved]
  - Tremor [Recovered/Resolved]
  - Feeling cold [Recovered/Resolved]
